FAERS Safety Report 7250811-2 (Version None)
Quarter: 2011Q1

REPORT INFORMATION
  Report Type: 
  Country: None (occurrence: None)
  Receive Date: 20110128
  Receipt Date: 20110119
  Transmission Date: 20110831
  Serious: Yes (Hospitalization)
  Sender: FDA-Public Use
  Company Number: JP-BRISTOL-MYERS SQUIBB COMPANY-15150485

PATIENT
  Age: 64 Year
  Sex: Male
  Weight: 69 kg

DRUGS (2)
  1. CRAVIT [Concomitant]
     Indication: BRONCHITIS
     Route: 048
     Dates: start: 20100604, end: 20100609
  2. HYDREA [Suspect]
     Indication: ESSENTIAL THROMBOCYTHAEMIA
     Dosage: INTERRUPT:04JUN10,RESTART:10JUN10:500MG,P.O.
     Route: 048
     Dates: start: 20100430, end: 20100614

REACTIONS (3)
  - PYREXIA [None]
  - INTERSTITIAL LUNG DISEASE [None]
  - ERYTHEMA [None]
